FAERS Safety Report 5138691-2 (Version None)
Quarter: 2006Q4

REPORT INFORMATION
  Report Type: 
  Country: None (occurrence: None)
  Receive Date: 20061024
  Receipt Date: 20061012
  Transmission Date: 20070319
  Serious: Yes (Disabling)
  Sender: FDA-Public Use
  Company Number: HQWYE038513OCT06

PATIENT
  Sex: Male

DRUGS (2)
  1. EFFEXOR [Suspect]
     Indication: ANXIETY
     Dosage: 150 MG
  2. EFFEXOR [Suspect]
     Indication: PANIC REACTION
     Dosage: 150 MG

REACTIONS (9)
  - ANGER [None]
  - ANXIETY [None]
  - CONDITION AGGRAVATED [None]
  - DRUG WITHDRAWAL SYNDROME [None]
  - FLAT AFFECT [None]
  - HALLUCINATION, AUDITORY [None]
  - MARITAL PROBLEM [None]
  - MOOD ALTERED [None]
  - SUICIDAL IDEATION [None]
